FAERS Safety Report 7790328-X (Version None)
Quarter: 2011Q3

REPORT INFORMATION
  Report Type: 
  Country: None (occurrence: None)
  Receive Date: 20110930
  Receipt Date: 20110923
  Transmission Date: 20111222
  Serious: Yes (Hospitalization)
  Sender: FDA-Public Use
  Company Number: US-B.I. PHARMACEUTICALS,INC./RIDGEFIELD-2011-BP-07496BP

PATIENT
  Sex: Male

DRUGS (16)
  1. LOPID [Concomitant]
     Indication: BLOOD CHOLESTEROL INCREASED
  2. LOPRESSOR [Concomitant]
     Indication: HYPERTENSION
     Dosage: 25 MG
     Route: 048
     Dates: start: 20110901
  3. NOVOLIN N [Concomitant]
     Indication: DIABETES MELLITUS
     Route: 058
     Dates: start: 20110801
  4. LOPID [Concomitant]
     Indication: BLOOD TRIGLYCERIDES INCREASED
     Route: 048
     Dates: start: 19900101
  5. PRADAXA [Suspect]
     Indication: ATRIAL FIBRILLATION
  6. FISH OIL [Concomitant]
     Indication: PROPHYLAXIS
     Dosage: 9600 MG
     Route: 048
     Dates: start: 20080101, end: 20110901
  7. PRADAXA [Suspect]
     Indication: ANTICOAGULANT THERAPY
     Dosage: 300 MG
     Route: 048
     Dates: start: 20110101, end: 20110904
  8. PLAVIX [Concomitant]
     Indication: STENT PLACEMENT
  9. METOPROLOL [Concomitant]
     Indication: HYPERTENSION
  10. LASIX [Concomitant]
     Indication: HYPERTENSION
  11. FISH OIL [Concomitant]
     Indication: ATRIAL FIBRILLATION
  12. NIACIN [Concomitant]
     Indication: BLOOD CHOLESTEROL INCREASED
     Route: 048
     Dates: start: 20110601
  13. CARDIZEM [Concomitant]
     Indication: HYPERTENSION
     Route: 048
     Dates: start: 20110101
  14. DIGOXIN [Concomitant]
     Indication: HYPERTENSION
  15. LISINOPRIL [Concomitant]
     Indication: HYPERTENSION
     Dosage: 20 MG
     Route: 048
     Dates: start: 19900101
  16. NOVOLIN R [Concomitant]
     Indication: DIABETES MELLITUS
     Route: 058
     Dates: start: 20110801

REACTIONS (6)
  - VOMITING [None]
  - HAEMORRHAGE [None]
  - HAEMATOCHEZIA [None]
  - FLUID RETENTION [None]
  - MOUTH HAEMORRHAGE [None]
  - HAEMORRHOIDAL HAEMORRHAGE [None]
